FAERS Safety Report 7900704-X (Version None)
Quarter: 2011Q4

REPORT INFORMATION
  Report Type: 
  Country: None (occurrence: None)
  Receive Date: 20111108
  Receipt Date: 20111102
  Transmission Date: 20120403
  Serious: Yes (Life-Threatening)
  Sender: FDA-Public Use
  Company Number: FR-CELGENEUS-056-21880-11101616

PATIENT
  Sex: Male

DRUGS (11)
  1. COZAAR [Concomitant]
     Route: 065
  2. REVLIMID [Suspect]
     Indication: MULTIPLE MYELOMA
     Route: 048
     Dates: start: 20100715, end: 20100804
  3. ASPIRIN [Concomitant]
     Route: 048
  4. SYMBICORT [Concomitant]
     Dosage: 200/6 MICROG
     Route: 055
  5. NEO RECORMON [Concomitant]
     Route: 065
  6. REVLIMID [Suspect]
     Route: 048
     Dates: start: 20100909, end: 20100929
  7. DEXAMETHASONE [Concomitant]
     Indication: MULTIPLE MYELOMA
     Route: 065
  8. REVLIMID [Suspect]
     Route: 048
     Dates: end: 20101103
  9. DOXAZOSIN MESYLATE [Concomitant]
     Route: 065
  10. KAYEXALATE [Concomitant]
     Route: 065
  11. UVEDOSE [Concomitant]
     Route: 065

REACTIONS (1)
  - PROSTATE CANCER [None]
